FAERS Safety Report 21989795 (Version 1)
Quarter: 2023Q1

REPORT INFORMATION
  Report Type: Spontaneous
  Country: US (occurrence: None)
  Receive Date: 20230213
  Receipt Date: 20230213
  Transmission Date: 20230418
  Serious: No
  Sender: FDA-Public Use
  Company Number: None

PATIENT
  Sex: Male

DRUGS (8)
  1. AKYNZEO (FOSNETUPITANT\PALONOSETRON HYDROCHLORIDE) [Suspect]
     Active Substance: FOSNETUPITANT\PALONOSETRON HYDROCHLORIDE
     Indication: Chemotherapy
     Dosage: FREQUENCY : EVERY OTHER WEEK;?
     Route: 042
  2. AKYNZEO [Concomitant]
  3. CAPECITABINE [Concomitant]
     Active Substance: CAPECITABINE
  4. DEXAMETHASONE [Concomitant]
     Active Substance: DEXAMETHASONE
  5. FAMOTIDINE [Concomitant]
     Active Substance: FAMOTIDINE
  6. FLAXSEED [Concomitant]
     Active Substance: FLAX SEED
  7. OXALIPLATIN [Concomitant]
     Active Substance: OXALIPLATIN
  8. VITAMIN D3 [Concomitant]
     Active Substance: CHOLECALCIFEROL

REACTIONS (1)
  - White blood cell count decreased [None]
